FAERS Safety Report 6106795-3 (Version None)
Quarter: 2009Q1

REPORT INFORMATION
  Report Type: 
  Country: None (occurrence: None)
  Receive Date: 20090304
  Receipt Date: 20090216
  Transmission Date: 20090719
  Serious: Yes (Hospitalization)
  Sender: FDA-Public Use
  Company Number: 8043460

PATIENT
  Sex: 0

DRUGS (4)
  1. PREDNISOLONE [Suspect]
  2. DICLOFENAC [Suspect]
  3. SIMVASTATIN [Concomitant]
  4. WARFARIN SODIUM [Concomitant]

REACTIONS (3)
  - CONTUSION [None]
  - FALL [None]
  - INTERNATIONAL NORMALISED RATIO INCREASED [None]
